FAERS Safety Report 19714405 (Version 1)
Quarter: 2021Q3

REPORT INFORMATION
  Report Type: Spontaneous
  Country: US (occurrence: US)
  Receive Date: 20210818
  Receipt Date: 20210818
  Transmission Date: 20211014
  Serious: No
  Sender: FDA-Public Use
  Company Number: US-CELLTRION INC.-2021US008932

PATIENT

DRUGS (3)
  1. TRUXIMA [Suspect]
     Active Substance: RITUXIMAB-ABBS
     Indication: ENCEPHALITIS AUTOIMMUNE
     Dosage: 10 MG, PLANNED WEEKLY FOR 4 DOSES
     Route: 037
     Dates: start: 20210706
  2. CYCLOPHOSPHAMIDE. [Concomitant]
     Active Substance: CYCLOPHOSPHAMIDE
  3. VELCADE [Concomitant]
     Active Substance: BORTEZOMIB

REACTIONS (2)
  - Product prescribing error [Unknown]
  - Off label use [Unknown]
